FAERS Safety Report 4352310-4 (Version None)
Quarter: 2004Q2

REPORT INFORMATION
  Report Type: 
  Country: None (occurrence: None)
  Receive Date: 20040428
  Receipt Date: 20040419
  Transmission Date: 20050107
  Serious: Yes (Life-Threatening, Hospitalization, Other)
  Sender: FDA-Public Use
  Company Number: FR-JNJFOC-20040202209

PATIENT
  Age: 23 Year
  Sex: Female

DRUGS (3)
  1. REMICADE [Suspect]
     Indication: CROHN'S DISEASE
     Dosage: 2 DOSES
     Dates: start: 20030813, end: 20030829
  2. AZATHIOPRINE [Concomitant]
  3. PREDNISONE TAB [Concomitant]

REACTIONS (3)
  - ARTHRITIS [None]
  - DISSEMINATED INTRAVASCULAR COAGULATION [None]
  - MENINGITIS MENINGOCOCCAL [None]
